FAERS Safety Report 7710378-9 (Version None)
Quarter: 2011Q3

REPORT INFORMATION
  Report Type: 
  Country: None (occurrence: None)
  Receive Date: 20110825
  Receipt Date: 20110614
  Transmission Date: 20111222
  Serious: No
  Sender: FDA-Public Use
  Company Number: US-BAYER-2011-051451

PATIENT
  Sex: Female

DRUGS (1)
  1. MIRENA [Suspect]
     Dosage: 20 MCG/24HR, CONT
     Route: 015
     Dates: start: 20070101

REACTIONS (6)
  - HOT FLUSH [None]
  - MOOD SWINGS [None]
  - HORMONE LEVEL ABNORMAL [None]
  - ALOPECIA [None]
  - WEIGHT INCREASED [None]
  - WEIGHT DECREASED [None]
